FAERS Safety Report 6196301-X (Version None)
Quarter: 2009Q2

REPORT INFORMATION
  Report Type: 
  Country: None (occurrence: None)
  Receive Date: 20090520
  Receipt Date: 20090508
  Transmission Date: 20091009
  Serious: Yes (Death)
  Sender: FDA-Public Use
  Company Number: JP-PFIZER INC-2009211590

PATIENT
  Age: 93 Year

DRUGS (1)
  1. ZITHROMAC SR [Suspect]
     Indication: PNEUMONIA
     Dosage: FREQUENCY: ONCE,
     Route: 048
     Dates: start: 20090427, end: 20090427

REACTIONS (1)
  - CEREBROVASCULAR ACCIDENT [None]
